FAERS Safety Report 7091589-5 (Version None)
Quarter: 2010Q4

REPORT INFORMATION
  Report Type: 
  Country: None (occurrence: None)
  Receive Date: 20101109
  Receipt Date: 20101102
  Transmission Date: 20110411
  Serious: Yes (Death, Other)
  Sender: FDA-Public Use
  Company Number: GXBR2010US01837

PATIENT
  Sex: Female
  Weight: 68.027 kg

DRUGS (1)
  1. METHOTREXATE SODIUM [Suspect]
     Indication: PSORIASIS
     Dosage: UNK MG, UNK
     Route: 048
     Dates: start: 20050101

REACTIONS (2)
  - CARDIAC DISORDER [None]
  - VASCULAR GRAFT [None]
